FAERS Safety Report 10238764 (Version 1)
Quarter: 2014Q2

REPORT INFORMATION
  Report Type: Spontaneous
  Country: US (occurrence: US)
  Receive Date: 20140616
  Receipt Date: 20140616
  Transmission Date: 20141212
  Serious: Yes (Hospitalization)
  Sender: FDA-Public Use
  Company Number: US-ELI_LILLY_AND_COMPANY-US201406001346

PATIENT
  Age: 52 Year
  Sex: Male

DRUGS (15)
  1. HUMALOG 25% LISPRO, 75% NPL [Suspect]
     Indication: PRODUCT USED FOR UNKNOWN INDICATION
     Dosage: UNK
     Route: 065
     Dates: start: 2012
  2. GABAPENTIN [Concomitant]
     Dosage: 300 MG, TID
  3. ASENAPINE [Concomitant]
     Dosage: 2 DF, EACH EVENING
     Route: 048
  4. BUPROPION [Concomitant]
     Dosage: 150 MG, BID
  5. TRAZODONE [Concomitant]
     Dosage: 100 MG, EACH EVENING
  6. HALOPERIDOL [Concomitant]
     Dosage: 5 MG, UNK
  7. CLONAZEPAM [Concomitant]
     Dosage: 1 MG, TID
  8. BENZTROPINE [Concomitant]
     Dosage: 2 MG, EACH EVENING
  9. CLONIDINE [Concomitant]
     Dosage: 0.1 MG, TID
  10. PHENTERMINE [Concomitant]
     Dosage: 37.5 MG, UNK
  11. ASPIRIN [Concomitant]
     Dosage: 80 MG, QD
  12. HIDROCLOROTIAZIDE [Concomitant]
     Dosage: 12.5 MG, UNK
  13. DULOXETINE [Concomitant]
     Dosage: 60 MG, EACH MORNING
  14. LISINOPRIL AND HYDROCHLOROTHIAZIDE [Concomitant]
     Dosage: 12.5 MG, EACH MORNING
  15. SILVADENE [Concomitant]
     Indication: SKIN ULCER

REACTIONS (2)
  - Suicidal ideation [Unknown]
  - Visual impairment [Unknown]
